FAERS Safety Report 9710283 (Version 2)
Quarter: 2013Q4

REPORT INFORMATION
  Report Type: Spontaneous
  Country: US (occurrence: US)
  Receive Date: 20131126
  Receipt Date: 20131126
  Transmission Date: 20140711
  Serious: No
  Sender: FDA-Public Use
  Company Number: US-BRISTOL-MYERS SQUIBB COMPANY-18759654

PATIENT
  Age: 62 Year
  Sex: Female
  Weight: 162.81 kg

DRUGS (2)
  1. BYETTA [Suspect]
     Indication: TYPE 2 DIABETES MELLITUS
     Dosage: INJECTION,DOSE VALUE:10MCG
     Dates: start: 20130403
  2. METFORMIN HCL [Suspect]

REACTIONS (3)
  - Pruritus [Not Recovered/Not Resolved]
  - Blood glucose decreased [Unknown]
  - Blood glucose increased [Unknown]
